FAERS Safety Report 24443709 (Version 2)
Quarter: 2024Q4

REPORT INFORMATION
  Report Type: Report from Study
  Country: US (occurrence: US)
  Receive Date: 20241016
  Receipt Date: 20241017
  Transmission Date: 20250115
  Serious: No
  Sender: ROCHE
  Company Number: US-ROCHE-1944637

PATIENT
  Age: 55 Year
  Sex: Male

DRUGS (28)
  1. RITUXAN [Suspect]
     Active Substance: RITUXIMAB
     Indication: Dermatomyositis
     Dosage: DAY 1 AND DAY 15 OF EVERY MONTH?DATE OF TREATMENT: 12-JUN-2018, 27-JUN-2018, 27-NOV-2017, 12-DEC-201
     Route: 065
     Dates: start: 20170523
  2. RITUXAN [Suspect]
     Active Substance: RITUXIMAB
     Indication: Dermatomyositis
     Route: 065
     Dates: start: 20171227
  3. RITUXAN [Suspect]
     Active Substance: RITUXIMAB
     Route: 065
     Dates: start: 20171212
  4. RITUXAN [Suspect]
     Active Substance: RITUXIMAB
     Route: 065
     Dates: start: 20181206
  5. RITUXAN [Suspect]
     Active Substance: RITUXIMAB
     Route: 065
     Dates: start: 20180627
  6. RITUXAN [Suspect]
     Active Substance: RITUXIMAB
     Route: 065
     Dates: start: 20191017
  7. RITUXAN [Suspect]
     Active Substance: RITUXIMAB
     Dosage: 500 MG SINGLE-USE VIAL
     Route: 065
     Dates: start: 20231010
  8. RITUXAN [Suspect]
     Active Substance: RITUXIMAB
     Indication: Dermatomyositis
     Dosage: 10 MG/ ML, 1000 MG ON DAY 1 AND DAY 15 EVERY 6 MONTHS
     Route: 041
     Dates: start: 20170523
  9. RITUXAN [Suspect]
     Active Substance: RITUXIMAB
     Indication: Dermatomyositis
  10. METHOTREXATE [Concomitant]
     Active Substance: METHOTREXATE
     Dosage: INJECT 20 MG(0.8ML) EVERY WEEK
  11. METHOTREXATE [Concomitant]
     Active Substance: METHOTREXATE
     Dosage: 0.8 CC SUBQ Q WEEK
     Route: 058
  12. ALBUTEROL [Concomitant]
     Active Substance: ALBUTEROL
     Indication: Wheezing
     Dosage: 90 MCG;1 PUFF INHALATION EVERY 4QH
     Route: 045
  13. FLUTICASONE FUROATE\VILANTEROL TRIFENATATE [Concomitant]
     Active Substance: FLUTICASONE FUROATE\VILANTEROL TRIFENATATE
     Dosage: 1 PUFF; INHALATION DAILY
  14. PREDNISONE [Concomitant]
     Active Substance: PREDNISONE
     Route: 048
  15. PREDNISONE [Concomitant]
     Active Substance: PREDNISONE
     Dosage: 0.5 TAB PO, DAILY
     Route: 048
  16. FOLIC ACID [Concomitant]
     Active Substance: FOLIC ACID
     Route: 048
  17. TRAMADOL [Concomitant]
     Active Substance: TRAMADOL
     Dosage: AS NEEDED
     Route: 048
  18. VOLTAREN [Concomitant]
     Active Substance: DICLOFENAC SODIUM
     Dosage: TO THE AFFECTED AREA
     Route: 061
  19. KETOCONAZOLE [Concomitant]
     Active Substance: KETOCONAZOLE
     Dosage: USE 1 X/WEEK TO SCALP AND AFFECTED FACIAL AREAS LATHER ,LEAVE IN PLACE FOR 5-10 MIN AND THEN RINSE O
  20. KETOCONAZOLE [Concomitant]
     Active Substance: KETOCONAZOLE
     Dosage: AFFECTED AREA ON FACE UNTIL RASH IS CLEAR THEN PRN
     Route: 061
  21. XOPENEX HFA [Concomitant]
     Active Substance: LEVALBUTEROL TARTRATE
     Dosage: AEROSOLL INHALER, INHALE 2 PUFF (90MCG) BY INHALATION ROUTE EVERY DAY 6 HRS, 45 MCG/ACTUATION AEROSO
  22. ANORO ELLIPTA [Concomitant]
     Active Substance: UMECLIDINIUM BROMIDE\VILANTEROL TRIFENATATE
     Dosage: INHALE 1 PUFF NY INHALATION ROUTE EVERY DAY T THE SAME TIME EACH DAY
     Route: 050
  23. BREO ELLIPTA [Concomitant]
     Active Substance: FLUTICASONE FUROATE\VILANTEROL TRIFENATATE
     Dosage: 200MCG-25 MCG/INH INHALATION POWDER, 1 PUFF; INHALATION DAILY
     Route: 045
  24. LEFLUNOMIDE [Concomitant]
     Active Substance: LEFLUNOMIDE
  25. FLUOXETINE [Concomitant]
     Active Substance: FLUOXETINE HYDROCHLORIDE
  26. LOSARTAN [Concomitant]
     Active Substance: LOSARTAN
  27. CIALIS [Concomitant]
     Active Substance: TADALAFIL
  28. ATORVASTATIN [Concomitant]
     Active Substance: ATORVASTATIN

REACTIONS (2)
  - No adverse event [Unknown]
  - Off label use [Unknown]
